FAERS Safety Report 23629927 (Version 2)
Quarter: 2024Q1

REPORT INFORMATION
  Report Type: Spontaneous
  Country: US (occurrence: US)
  Receive Date: 20240314
  Receipt Date: 20240328
  Transmission Date: 20240409
  Serious: No
  Sender: FDA-Public Use
  Company Number: US-AMGEN-USASP2024050960

PATIENT
  Age: 81 Year
  Sex: Female

DRUGS (3)
  1. EVENITY [Suspect]
     Active Substance: ROMOSOZUMAB-AQQG
     Indication: Osteoporosis
     Dosage: 210 MILLIGRAM, QMO
     Route: 065
     Dates: start: 202312
  2. LEVOCETIRIZINE [Concomitant]
     Active Substance: LEVOCETIRIZINE
  3. LIPITOR [Concomitant]
     Active Substance: ATORVASTATIN CALCIUM

REACTIONS (1)
  - Rosacea [Not Recovered/Not Resolved]

NARRATIVE: CASE EVENT DATE: 20240101
